FAERS Safety Report 20090477 (Version 2)
Quarter: 2022Q1

REPORT INFORMATION
  Report Type: Report from Study
  Country: US (occurrence: US)
  Receive Date: 20211119
  Receipt Date: 20220315
  Transmission Date: 20220423
  Serious: Yes (Other)
  Sender: FDA-Public Use
  Company Number: US-TAKEDA-US201812355

PATIENT
  Sex: Female

DRUGS (1)
  1. HUMAN IMMUNOGLOBULIN G [Suspect]
     Active Substance: HUMAN IMMUNOGLOBULIN G
     Indication: Primary immunodeficiency syndrome
     Route: 042

REACTIONS (7)
  - Infusion site thrombosis [Unknown]
  - Infusion site injury [Unknown]
  - COVID-19 [Recovering/Resolving]
  - Shoulder operation [Unknown]
  - Migraine [Unknown]
  - Headache [Unknown]
  - Therapy interrupted [Unknown]
